FAERS Safety Report 9179449 (Version 1)
Quarter: 2013Q1

REPORT INFORMATION
  Report Type: Report from Study
  Country: DE (occurrence: DE)
  Receive Date: 20130321
  Receipt Date: 20130321
  Transmission Date: 20140127
  Serious: Yes (Hospitalization)
  Sender: FDA-Public Use
  Company Number: DE-ABBOTT-13P-062-1064371-00

PATIENT
  Sex: Female

DRUGS (2)
  1. HUMIRA [Suspect]
     Indication: COLITIS ULCERATIVE
     Route: 058
     Dates: start: 20120725, end: 201302
  2. HUMIRA [Suspect]
     Route: 058

REACTIONS (7)
  - Pyrexia [Recovering/Resolving]
  - Adenovirus infection [Recovering/Resolving]
  - Colitis ulcerative [Recovering/Resolving]
  - Rash [Recovering/Resolving]
  - Rash pustular [Unknown]
  - Acne [Unknown]
  - Pain [Unknown]
